FAERS Safety Report 11888760 (Version 5)
Quarter: 2019Q1

REPORT INFORMATION
  Report Type: Spontaneous
  Country: CZ (occurrence: CZ)
  Receive Date: 20160105
  Receipt Date: 20190219
  Transmission Date: 20190417
  Serious: Yes (Death, Hospitalization, Other)
  Sender: FDA-Public Use
  Company Number: CZ-PFIZER INC-2015471377

PATIENT
  Age: 65 Year
  Sex: Female

DRUGS (5)
  1. TARKA [Interacting]
     Active Substance: TRANDOLAPRIL\VERAPAMIL HYDROCHLORIDE
     Dosage: 42 DF, UNK
  2. EBRANTIL /00631801/ [Suspect]
     Active Substance: URAPIDIL
     Dosage: 250 DF, UNK
  3. ARTRODAR [Suspect]
     Active Substance: DIACEREIN
     Dosage: 80 DF, UNK
  4. ATORVASTATIN CALCIUM. [Suspect]
     Active Substance: ATORVASTATIN CALCIUM
     Dosage: 80 DF, UNK
  5. MOXOGAMMA [Suspect]
     Active Substance: MOXONIDINE
     Dosage: 50 DF, UNK

REACTIONS (6)
  - Cardiogenic shock [Fatal]
  - Intentional overdose [Fatal]
  - Drug interaction [Unknown]
  - Multi-organ disorder [Unknown]
  - Acute kidney injury [Fatal]
  - Rhabdomyolysis [Unknown]
